FAERS Safety Report 5009353-7 (Version None)
Quarter: 2006Q2

REPORT INFORMATION
  Report Type: 
  Country: None (occurrence: None)
  Receive Date: 20060524
  Receipt Date: 20060512
  Transmission Date: 20061013
  Serious: Yes (Hospitalization)
  Sender: FDA-Public Use
  Company Number: FRWYE619012MAY06

PATIENT
  Age: 68 Year
  Sex: Male
  Weight: 113 kg

DRUGS (2)
  1. ENBREL [Suspect]
     Indication: CROHN'S DISEASE
     Dosage: UNKNOWN
     Route: 058
     Dates: end: 20060329
  2. BUTAZOLIDIN [Concomitant]
     Dosage: 600 MG TOTAL DAILY
     Route: 048
     Dates: start: 20060313, end: 20060329

REACTIONS (2)
  - ERYSIPELAS [None]
  - WOUND [None]
